FAERS Safety Report 26022324 (Version 2)
Quarter: 2025Q4

REPORT INFORMATION
  Report Type: Report from Study
  Country: US (occurrence: US)
  Receive Date: 20251110
  Receipt Date: 20251114
  Transmission Date: 20260118
  Serious: Yes (Death, Hospitalization)
  Sender: ALNYLAM PHARMACEUTICALS
  Company Number: US-ALNYLAM PHARMACEUTICALS, INC.-ALN-2025-006766

PATIENT
  Age: 77 Year

DRUGS (1)
  1. AMVUTTRA [Suspect]
     Active Substance: VUTRISIRAN
     Indication: Cardiac amyloidosis
     Dosage: UNK
     Route: 065

REACTIONS (4)
  - Hospitalisation [Fatal]
  - Treatment noncompliance [Unknown]
  - General physical condition abnormal [Unknown]
  - Product dose omission issue [Unknown]
